FAERS Safety Report 15843001 (Version 2)
Quarter: 2019Q1

REPORT INFORMATION
  Report Type: Spontaneous
  Country: BE (occurrence: BE)
  Receive Date: 20190118
  Receipt Date: 20190129
  Transmission Date: 20190417
  Serious: Yes (Other)
  Sender: FDA-Public Use
  Company Number: BE-ALLERGAN-1902043US

PATIENT
  Age: 52 Year
  Sex: Female
  Weight: 57 kg

DRUGS (3)
  1. ESCITALOPRAM OXALATE - BP [Suspect]
     Active Substance: ESCITALOPRAM OXALATE
     Indication: PANIC ATTACK
     Dosage: 5 MG, UNK
     Route: 048
     Dates: start: 20181216, end: 20181216
  2. KERUTABS [Concomitant]
     Indication: LACTOSE INTOLERANCE
     Dosage: UNK
     Route: 065
     Dates: start: 2016
  3. L-THYROXINE CHRISTIAENS 25 MCG, TABLETTEN [Concomitant]
     Indication: HYPOTHYROIDISM
     Dosage: MO-TU-FR: 25 MCG/DAY WE-SA-SU: 2/25 MCG/DAY
     Route: 048
     Dates: start: 2014

REACTIONS (4)
  - Off label use [Unknown]
  - Limb discomfort [Unknown]
  - Tremor [Unknown]
  - Syncope [Unknown]

NARRATIVE: CASE EVENT DATE: 20181216
